FAERS Safety Report 16588582 (Version 3)
Quarter: 2019Q3

REPORT INFORMATION
  Report Type: Spontaneous
  Country: US (occurrence: US)
  Receive Date: 20190718
  Receipt Date: 20190719
  Transmission Date: 20191004
  Serious: No
  Sender: FDA-Public Use
  Company Number: US-TEVA-2019-US-1079091

PATIENT

DRUGS (1)
  1. COPAXONE [Suspect]
     Active Substance: GLATIRAMER ACETATE
     Indication: MULTIPLE SCLEROSIS
     Dosage: POTENCY: 40MG IN 1 ML?PACKAGED: CARTON 12.
     Route: 065
     Dates: start: 20180821

REACTIONS (4)
  - Incorrect dose administered [Unknown]
  - Middle ear effusion [Unknown]
  - Nausea [Unknown]
  - Drug ineffective [Unknown]
